FAERS Safety Report 19885672 (Version 3)
Quarter: 2021Q4

REPORT INFORMATION
  Report Type: Spontaneous
  Country: US (occurrence: US)
  Receive Date: 20210927
  Receipt Date: 20211202
  Transmission Date: 20220303
  Serious: Yes (Other)
  Sender: FDA-Public Use
  Company Number: US-BAYER-2021A215308

PATIENT
  Age: 32 Year
  Sex: Female
  Weight: 57.596 kg

DRUGS (6)
  1. MIRENA [Suspect]
     Active Substance: LEVONORGESTREL
     Indication: Contraception
     Dosage: 20?G/DAY
     Route: 015
     Dates: start: 20171016, end: 20210915
  2. COVID-19 VACCINE [Concomitant]
     Dosage: UNK
     Dates: start: 202103
  3. VALTREX [Concomitant]
     Active Substance: VALACYCLOVIR HYDROCHLORIDE
     Dosage: 500 MG, BID
     Route: 048
  4. TINIDAZOLE [Concomitant]
     Active Substance: TINIDAZOLE
     Dosage: 500 MG, QD
  5. FLUCONAZOLE [Concomitant]
     Active Substance: FLUCONAZOLE
     Dosage: 150 MG, TID
     Route: 048
  6. DIFLUCAN [Concomitant]
     Active Substance: FLUCONAZOLE

REACTIONS (7)
  - Device breakage [Not Recovered/Not Resolved]
  - Device expulsion [Recovered/Resolved]
  - Complication of device removal [None]
  - Menstruation irregular [None]
  - Papilloma viral infection [None]
  - Cervical dysplasia [None]
  - Device difficult to use [None]

NARRATIVE: CASE EVENT DATE: 20190212
